FAERS Safety Report 6174284-6 (Version None)
Quarter: 2009Q2

REPORT INFORMATION
  Report Type: 
  Country: None (occurrence: None)
  Receive Date: 20090430
  Receipt Date: 20080430
  Transmission Date: 20091009
  Serious: No
  Sender: FDA-Public Use
  Company Number: US-ASTRAZENECA-2008UW08800

PATIENT
  Age: 73 Year
  Sex: Female
  Weight: 90.7 kg

DRUGS (5)
  1. NEXIUM [Suspect]
     Indication: GASTROOESOPHAGEAL REFLUX DISEASE
     Route: 048
     Dates: start: 20080429
  2. ENALAPRIL [Concomitant]
  3. LEVOTHYROXINE SODIUM [Concomitant]
  4. HYDROCHLOROTHIAZIDE [Concomitant]
  5. LOVASTATIN [Concomitant]

REACTIONS (3)
  - PHARYNGEAL OEDEMA [None]
  - RASH [None]
  - THROAT TIGHTNESS [None]
